FAERS Safety Report 8845664 (Version 2)
Quarter: 2015Q3

REPORT INFORMATION
  Report Type: Report from Study
  Country: US (occurrence: US)
  Receive Date: 20121017
  Receipt Date: 20150813
  Transmission Date: 20151125
  Serious: Yes (Life-Threatening, Hospitalization, Other)
  Sender: FDA-Public Use
  Company Number: US-ROCHE-1139316

PATIENT
  Sex: Male

DRUGS (10)
  1. REZULIN [Concomitant]
     Active Substance: TROGLITAZONE
     Route: 065
  2. DEXEDRINE [Concomitant]
     Active Substance: DEXTROAMPHETAMINE SULFATE
     Route: 065
  3. LAMISIL [Concomitant]
     Active Substance: TERBINAFINE HYDROCHLORIDE
  4. REZULIN [Concomitant]
     Active Substance: TROGLITAZONE
     Route: 048
  5. NUTROPIN AQ [Suspect]
     Active Substance: SOMATROPIN
     Route: 058
  6. CORTEF [Concomitant]
     Active Substance: HYDROCORTISONE
     Route: 065
  7. NUTROPIN AQ [Suspect]
     Active Substance: SOMATROPIN
     Indication: HYPOPITUITARISM
     Route: 058
  8. LEVOXYL [Concomitant]
     Active Substance: LEVOTHYROXINE SODIUM
     Route: 065
  9. DDAVP [Concomitant]
     Active Substance: DESMOPRESSIN ACETATE
     Route: 045
  10. CORTEF [Concomitant]
     Active Substance: HYDROCORTISONE
     Route: 065

REACTIONS (8)
  - Dehydration [Unknown]
  - Acanthosis nigricans [Unknown]
  - Obstructive airways disorder [Unknown]
  - Type 2 diabetes mellitus [Unknown]
  - Insulin resistance [Unknown]
  - Sleep apnoea syndrome [Unknown]
  - Obesity [Unknown]
  - Herpes simplex pharyngitis [Unknown]
